FAERS Safety Report 20719991 (Version 1)
Quarter: 2022Q2

REPORT INFORMATION
  Report Type: Spontaneous
  Country: GR (occurrence: GR)
  Receive Date: 20220418
  Receipt Date: 20220418
  Transmission Date: 20220721
  Serious: Yes (Other)
  Sender: FDA-Public Use
  Company Number: None

PATIENT
  Age: 47 Year
  Sex: Male
  Weight: 73 kg

DRUGS (6)
  1. COMIRNATY [Suspect]
     Active Substance: TOZINAMERAN
     Indication: COVID-19 immunisation
     Dosage: DOSE 1, SINGLE
     Dates: start: 20210916, end: 20210916
  2. XANAX [Suspect]
     Active Substance: ALPRAZOLAM
     Dosage: UNK
     Route: 048
     Dates: start: 20100901
  3. DUSPATALIN GASTRO [Concomitant]
     Dosage: UNK, 1X/DAY
     Route: 048
     Dates: start: 20210203
  4. IBUTIN [Concomitant]
     Dosage: UNK, 1X/DAY
     Route: 048
     Dates: start: 20210823
  5. ASPIRIN [Concomitant]
     Active Substance: ASPIRIN
     Dosage: UNK, 1X/DAY
     Route: 048
     Dates: start: 20210801
  6. FLUVOXAMINE [Concomitant]
     Active Substance: FLUVOXAMINE
     Dosage: UNK UNK, 1X/DAY
     Route: 048
     Dates: start: 20051201

REACTIONS (1)
  - Cholinergic syndrome [Unknown]

NARRATIVE: CASE EVENT DATE: 20210918
